FAERS Safety Report 9393561 (Version 3)
Quarter: 2014Q1

REPORT INFORMATION
  Report Type: Report from Study
  Country: US (occurrence: US)
  Receive Date: 20130710
  Receipt Date: 20140203
  Transmission Date: 20141002
  Serious: Yes (Other)
  Sender: FDA-Public Use
  Company Number: US-PURDUE-USA-2013-0103808

PATIENT
  Age: 29 Year
  Sex: Male

DRUGS (11)
  1. BUTRANS [Suspect]
     Indication: BACK PAIN
     Dosage: 5 MCG/HR, WEEKLY
     Route: 062
  2. BUTRANS [Suspect]
     Indication: PAIN
     Dosage: 10 MCG/HR, WEEKLY
     Route: 062
  3. SOMA [Concomitant]
     Indication: PRODUCT USED FOR UNKNOWN INDICATION
     Dosage: 350 MG, PRN
     Route: 048
  4. LEXAPRO [Concomitant]
     Indication: PRODUCT USED FOR UNKNOWN INDICATION
     Dosage: 20 MG, DAILY
     Route: 048
  5. DALMANE [Concomitant]
     Indication: PRODUCT USED FOR UNKNOWN INDICATION
     Dosage: 15-30 MG. HS, PRN
  6. DIAZEPAM [Concomitant]
     Indication: PRODUCT USED FOR UNKNOWN INDICATION
     Dosage: 5 MG, PRN
     Route: 048
  7. NORCO [Concomitant]
     Indication: PRODUCT USED FOR UNKNOWN INDICATION
     Dosage: 5/325 MG, 1 TABLET, Q8H
     Route: 048
  8. NORCO [Concomitant]
     Dosage: 10/325 MG, 1 TABLET, Q6H
     Route: 048
  9. PERCOCET                           /00867901/ [Concomitant]
     Indication: PRODUCT USED FOR UNKNOWN INDICATION
     Dosage: 5/325 MG , 1 TABLET, Q4- 6H PRN
     Route: 048
  10. TESTOSTERONE [Concomitant]
     Indication: PRODUCT USED FOR UNKNOWN INDICATION
     Dosage: UNKNOWN
  11. ADVIL                              /00109201/ [Concomitant]
     Indication: PRODUCT USED FOR UNKNOWN INDICATION
     Dosage: 200 MG, PRN
     Route: 048

REACTIONS (17)
  - Tooth extraction [Recovered/Resolved]
  - Physical assault [Recovered/Resolved]
  - Injury [Recovered/Resolved]
  - Tooth injury [Not Recovered/Not Resolved]
  - Fall [Unknown]
  - Road traffic accident [Unknown]
  - Swelling [Unknown]
  - Toothache [Unknown]
  - Contusion [Unknown]
  - Aphagia [Unknown]
  - Weight decreased [Unknown]
  - Excoriation [Unknown]
  - Arthralgia [Unknown]
  - Pain in extremity [Unknown]
  - Oral pain [Not Recovered/Not Resolved]
  - Drug effect decreased [Unknown]
  - Drug ineffective [Not Recovered/Not Resolved]
